FAERS Safety Report 4571299-6 (Version None)
Quarter: 2005Q1

REPORT INFORMATION
  Report Type: 
  Country: None (occurrence: None)
  Receive Date: 20050202
  Receipt Date: 20050120
  Transmission Date: 20050727
  Serious: Yes (Other)
  Sender: FDA-Public Use
  Company Number: 2004097772

PATIENT
  Age: 76 Year
  Sex: Male
  Weight: 76.2043 kg

DRUGS (2)
  1. ARTHROTEC [Suspect]
     Indication: ARTHRITIS
     Dosage: 150 MG (75 MG, 2 IN 1 D), ORAL
     Route: 048
     Dates: start: 19980101
  2. LEVOTHYROXINE SODIUM [Concomitant]

REACTIONS (7)
  - ARTHROPATHY [None]
  - DRUG INEFFECTIVE [None]
  - FEMUR FRACTURE [None]
  - FRACTURE NONUNION [None]
  - IMPAIRED HEALING [None]
  - MEDICAL DEVICE COMPLICATION [None]
  - SPORTS INJURY [None]
